FAERS Safety Report 22105165 (Version 1)
Quarter: 2023Q1

REPORT INFORMATION
  Report Type: Spontaneous
  Country: US (occurrence: US)
  Receive Date: 20230316
  Receipt Date: 20230316
  Transmission Date: 20230418
  Serious: No
  Sender: FDA-Public Use
  Company Number: US-ENDO PHARMACEUTICALS INC-2022-006756

PATIENT
  Sex: Male
  Weight: 61.224 kg

DRUGS (1)
  1. XIAFLEX [Suspect]
     Active Substance: COLLAGENASE CLOSTRIDIUM HISTOLYTICUM
     Indication: Dupuytren^s contracture
     Dosage: UNK UNKNOWN, UNKNOWN (ONE INJECTION INTO RIGHT HAND)
     Route: 051

REACTIONS (2)
  - Nerve injury [Recovered/Resolved]
  - Drug effect less than expected [Unknown]
